FAERS Safety Report 16378047 (Version 2)
Quarter: 2019Q2

REPORT INFORMATION
  Report Type: Spontaneous
  Country: RU (occurrence: RU)
  Receive Date: 20190531
  Receipt Date: 20190605
  Transmission Date: 20190711
  Serious: Yes (Other)
  Sender: FDA-Public Use
  Company Number: RU-009507513-1905RUS013682

PATIENT

DRUGS (5)
  1. LORATADINE. [Concomitant]
     Active Substance: LORATADINE
     Dosage: HALF TABLET, 3-5 DAYS
  2. NASONEX [Suspect]
     Active Substance: MOMETASONE FUROATE
     Dosage: 1 DOSE, 2 TIMES A DAY (BID) DURING 5 DAYS
     Dates: start: 2019
  3. BRONCHO MUNAL [Concomitant]
     Active Substance: DIETARY SUPPLEMENT
     Dosage: 1 DROP (3,5 MG) A DAY, IN THE MORNING, 10 DAYS
  4. GRAMMIDIN [Concomitant]
     Dosage: 1 TABLET, 4 TIMES A DAY (Q6H) DURING 7 DAYS.
  5. NASONEX [Suspect]
     Active Substance: MOMETASONE FUROATE
     Dosage: 1 DOSE ONCE A DAY IN THE MORNING (IF NECESSARY TO ADD IN EVENING 1 DOSE 7 DAYS), FOR 6 WEEKS
     Dates: start: 2019

REACTIONS (4)
  - Incorrect dose administered [Unknown]
  - Toxicity to various agents [Unknown]
  - Overdose [Unknown]
  - Loss of consciousness [Unknown]

NARRATIVE: CASE EVENT DATE: 2019
